FAERS Safety Report 6456470-0 (Version None)
Quarter: 2009Q4

REPORT INFORMATION
  Report Type: 
  Country: None (occurrence: None)
  Receive Date: 20091125
  Receipt Date: 20091117
  Transmission Date: 20100525
  Serious: Yes (Death, Life-Threatening, Hospitalization, Disabling, Other)
  Sender: FDA-Public Use
  Company Number: GB-BRISTOL-MYERS SQUIBB COMPANY-13666938

PATIENT
  Age: 72 Year
  Sex: Male

DRUGS (15)
  1. ARIPIPRAZOLE [Suspect]
     Route: 048
  2. CLOZARIL [Concomitant]
     Indication: SCHIZOPHRENIA
     Dosage: DOSE INCREASED TO 300MG AND THEN TO 75MG BID.
     Route: 048
     Dates: start: 19990904, end: 20080310
  3. ASPIRIN [Concomitant]
     Indication: CARDIAC DISORDER
     Route: 048
     Dates: start: 20060530
  4. ATORVASTATIN CALCIUM [Concomitant]
     Route: 048
  5. CLONAZEPAM [Concomitant]
     Indication: RESTLESS LEGS SYNDROME
     Route: 048
     Dates: start: 20060614
  6. DOMPERIDONE [Concomitant]
     Indication: GASTRITIS
     Route: 048
     Dates: start: 20060614
  7. ESOMEPRAZOLE [Concomitant]
     Indication: GASTRITIS
     Dosage: THERAPY DATES:30MAY06 CONTI
     Route: 048
     Dates: start: 20020101
  8. FUROSEMIDE [Concomitant]
     Indication: BLOOD PRESSURE
     Dosage: DOSAGE:20MG WAS ASLO TAKEN.
     Route: 048
     Dates: start: 20060530
  9. GLICLAZIDE [Concomitant]
     Indication: DIABETES MELLITUS
     Dosage: 40MG
     Route: 048
  10. PARACETAMOL [Concomitant]
     Indication: PAIN
     Route: 048
  11. PERINDOPRIL [Concomitant]
     Indication: BLOOD PRESSURE
     Route: 048
  12. ESCITALOPRAM [Concomitant]
     Indication: DEPRESSION
     Dosage: 10MG,15MG
     Route: 048
     Dates: start: 20050101
  13. ISOSORBIDE MONONITRATE [Concomitant]
     Indication: ANGINA PECTORIS
     Route: 048
     Dates: start: 19990101
  14. ALBUTEROL [Concomitant]
     Indication: ASTHMA
     Dates: start: 19990101
  15. SERETIDE [Concomitant]
     Indication: ASTHMA
     Route: 048

REACTIONS (42)
  - ANGINA PECTORIS [None]
  - ASPIRATION [None]
  - ASTHMA [None]
  - BACK PAIN [None]
  - BENIGN COLONIC NEOPLASM [None]
  - BRONCHOPNEUMONIA [None]
  - CHEST PAIN [None]
  - CHEST X-RAY ABNORMAL [None]
  - CHRONIC OBSTRUCTIVE PULMONARY DISEASE [None]
  - COUGH [None]
  - CREPITATIONS [None]
  - DECREASED APPETITE [None]
  - DEPRESSED LEVEL OF CONSCIOUSNESS [None]
  - DIABETES MELLITUS [None]
  - DIZZINESS [None]
  - FATIGUE [None]
  - GAIT DISTURBANCE [None]
  - GASTRITIS [None]
  - HAEMOGLOBIN DECREASED [None]
  - ILEUS PARALYTIC [None]
  - LOWER RESPIRATORY TRACT INFECTION [None]
  - MALAISE [None]
  - MENTAL IMPAIRMENT [None]
  - MYELODYSPLASTIC SYNDROME [None]
  - MYOCARDIAL ISCHAEMIA [None]
  - NEUTROPHIL COUNT INCREASED [None]
  - OESOPHAGITIS [None]
  - PALLOR [None]
  - PLATELET COUNT INCREASED [None]
  - PNEUMONIA [None]
  - PNEUMONIA ASPIRATION [None]
  - POLYP [None]
  - PULMONARY FIBROSIS [None]
  - PYREXIA [None]
  - RED BLOOD CELL COUNT DECREASED [None]
  - RENAL FAILURE [None]
  - RESTLESS LEGS SYNDROME [None]
  - SEDATION [None]
  - SEPSIS [None]
  - SPUTUM DISCOLOURED [None]
  - TARDIVE DYSKINESIA [None]
  - WHITE BLOOD CELL COUNT INCREASED [None]
